FAERS Safety Report 20796568 (Version 2)
Quarter: 2022Q2

REPORT INFORMATION
  Report Type: Report from Study
  Country: US (occurrence: US)
  Receive Date: 20220506
  Receipt Date: 20220519
  Transmission Date: 20220720
  Serious: Yes (Other)
  Sender: FDA-Public Use
  Company Number: US-AMGEN-USASP2022077614

PATIENT
  Age: 72 Year
  Sex: Male
  Weight: 77.2 kg

DRUGS (1)
  1. CARFILZOMIB [Suspect]
     Active Substance: CARFILZOMIB
     Indication: Plasma cell myeloma
     Dosage: UNK UNK, PER CHEMO REGIM
     Route: 065

REACTIONS (3)
  - Throat irritation [Unknown]
  - Infusion related reaction [Unknown]
  - Cough [Unknown]

NARRATIVE: CASE EVENT DATE: 20220503
